FAERS Safety Report 9108618 (Version 1)
Quarter: 2013Q1

REPORT INFORMATION
  Report Type: Spontaneous
  Country: US (occurrence: US)
  Receive Date: 20130222
  Receipt Date: 20130222
  Transmission Date: 20140127
  Serious: Yes (Hospitalization)
  Sender: FDA-Public Use
  Company Number: US-BAYER-2013-021416

PATIENT
  Age: 43 Year
  Sex: Female

DRUGS (7)
  1. YAZ [Suspect]
  2. YASMIN [Suspect]
  3. OCELLA [Suspect]
  4. FLUCONAZOLE [Concomitant]
     Dosage: 150 MG, UNK
  5. COLACE [Concomitant]
  6. NEXIUM [Concomitant]
  7. DARVOCET [Concomitant]

REACTIONS (1)
  - Pulmonary embolism [None]
